FAERS Safety Report 23592062 (Version 3)
Quarter: 2024Q1

REPORT INFORMATION
  Report Type: Spontaneous
  Country: US (occurrence: US)
  Receive Date: 20240304
  Receipt Date: 20240327
  Transmission Date: 20240410
  Serious: Yes (Hospitalization, Other)
  Sender: FDA-Public Use
  Company Number: US-PFIZER INC-202400054474

PATIENT
  Age: 75 Year
  Sex: Male
  Weight: 64.853 kg

DRUGS (2)
  1. VELSIPITY [Suspect]
     Active Substance: ETRASIMOD ARGININE
     Indication: Colitis
     Dosage: 2 MG, 1X/DAY
     Route: 048
     Dates: start: 20231215
  2. MESALAMINE EXTENDED RELEASE [Concomitant]
     Dosage: 4 DF, DAILY
     Dates: start: 202311

REACTIONS (7)
  - Peripheral swelling [Not Recovered/Not Resolved]
  - Tremor [Not Recovered/Not Resolved]
  - Pain in extremity [Not Recovered/Not Resolved]
  - Pruritus [Recovered/Resolved]
  - Frequent bowel movements [Not Recovered/Not Resolved]
  - Haematochezia [Recovering/Resolving]
  - Faeces hard [Unknown]

NARRATIVE: CASE EVENT DATE: 20240101
